FAERS Safety Report 6300315-6 (Version None)
Quarter: 2009Q3

REPORT INFORMATION
  Report Type: 
  Country: None (occurrence: None)
  Receive Date: 20090803
  Receipt Date: 20090721
  Transmission Date: 20100115
  Serious: Yes (Other)
  Sender: FDA-Public Use
  Company Number: 8049300

PATIENT
  Age: 82 Year
  Sex: Male

DRUGS (17)
  1. KEPPRA [Suspect]
     Indication: CONVULSION
     Dosage: NI, PO
     Route: 048
     Dates: end: 20090622
  2. ACETAMINOPHEN [Suspect]
     Indication: PAIN
     Dosage: PRN, PO
     Route: 048
  3. ACETAMINOPHEN [Suspect]
     Indication: PAIN
     Dosage: 1 G 3/D, PO
     Route: 048
     Dates: start: 20090615, end: 20090622
  4. PLAVIX [Suspect]
     Indication: ARTERIAL THROMBOSIS
     Dosage: PO
     Route: 048
     Dates: end: 20090622
  5. TAHOR [Suspect]
     Indication: HYPERCHOLESTEROLAEMIA
     Dosage: PO
     Route: 048
     Dates: end: 20090622
  6. TAHOR [Suspect]
     Indication: HYPERCHOLESTEROLAEMIA
     Dosage: PO
     Route: 048
     Dates: start: 20090630
  7. NICARDIPINE HCL [Concomitant]
  8. XATRAL [Concomitant]
  9. DIFFU K [Concomitant]
  10. CITALOPRAM HYDROBROMIDE [Concomitant]
  11. URBANYL [Concomitant]
  12. FUMAFER [Concomitant]
  13. TRAMADOL LP [Concomitant]
  14. FOZITEC [Concomitant]
  15. GAVISCON [Concomitant]
  16. KARDEGIC [Concomitant]
  17. NITRODERM [Concomitant]

REACTIONS (1)
  - THROMBOCYTOPENIA [None]
